FAERS Safety Report 15947803 (Version 2)
Quarter: 2019Q1

REPORT INFORMATION
  Report Type: Spontaneous
  Country: DE (occurrence: DE)
  Receive Date: 20190211
  Receipt Date: 20190212
  Transmission Date: 20190417
  Serious: Yes (Hospitalization, Disabling, Other)
  Sender: FDA-Public Use
  Company Number: DE-BAYER-200410405BVD

PATIENT
  Age: 42 Year
  Sex: Male
  Weight: 82 kg

DRUGS (4)
  1. TAZOBAC [Concomitant]
     Active Substance: PIPERACILLIN SODIUM\TAZOBACTAM SODIUM
  2. CIPROBAY [CIPROFLOXACIN HYDROCHLORIDE] [Suspect]
     Active Substance: CIPROFLOXACIN
     Indication: DIVERTICULITIS
     Dosage: 250 MG, BID
     Route: 048
     Dates: start: 20030829, end: 20030907
  3. CIPROBAY [CIPROFLOXACIN HYDROCHLORIDE] [Suspect]
     Active Substance: CIPROFLOXACIN
     Indication: DIVERTICULITIS
     Dosage: 500 MG, QID
     Route: 048
     Dates: start: 20030707, end: 20030717
  4. CLONT [METRONIDAZOLE] [Concomitant]

REACTIONS (4)
  - Acquired diaphragmatic eventration [Not Recovered/Not Resolved]
  - Paresis [Unknown]
  - Diaphragm muscle weakness [Unknown]
  - Dyspnoea [Recovered/Resolved]

NARRATIVE: CASE EVENT DATE: 200308
